FAERS Safety Report 5589520-4 (Version None)
Quarter: 2008Q1

REPORT INFORMATION
  Report Type: 
  Country: None (occurrence: None)
  Receive Date: 20080114
  Receipt Date: 20080102
  Transmission Date: 20080703
  Serious: Yes (Hospitalization)
  Sender: FDA-Public Use
  Company Number: FR-AVENTIS-200810028FR

PATIENT
  Age: 62 Year
  Sex: Male

DRUGS (5)
  1. AMARYL [Suspect]
     Indication: DIABETES MELLITUS
     Route: 048
     Dates: start: 20040101, end: 20071101
  2. METFORMIN HCL [Concomitant]
     Indication: DIABETES MELLITUS
     Route: 048
     Dates: start: 20040101, end: 20071101
  3. STAGID [Concomitant]
     Indication: DIABETES MELLITUS
     Route: 048
     Dates: start: 20070801, end: 20071101
  4. LANTUS [Concomitant]
     Indication: DIABETES MELLITUS
     Route: 058
     Dates: start: 20070801
  5. TRANDATE [Concomitant]
     Indication: HYPERTENSION
     Route: 048

REACTIONS (4)
  - ABDOMINAL PAIN [None]
  - ADENOCARCINOMA PANCREAS [None]
  - DIABETES MELLITUS [None]
  - WEIGHT DECREASED [None]
